FAERS Safety Report 12168097 (Version 1)
Quarter: 2016Q1

REPORT INFORMATION
  Report Type: Spontaneous
  Country: US (occurrence: US)
  Receive Date: 20160310
  Receipt Date: 20160310
  Transmission Date: 20160526
  Serious: Yes (Other)
  Sender: FDA-Public Use
  Company Number: US-PFIZER INC-2016130932

PATIENT
  Age: 59 Year
  Sex: Male

DRUGS (21)
  1. TIKOSYN [Suspect]
     Active Substance: DOFETILIDE
     Indication: FATIGUE
  2. COREG [Concomitant]
     Active Substance: CARVEDILOL
     Dosage: 25 MG, 2X/DAY
     Route: 048
  3. PLAVIX [Concomitant]
     Active Substance: CLOPIDOGREL BISULFATE
     Dosage: 75 MG, DAILY
     Route: 048
  4. NITRO-DUR [Concomitant]
     Active Substance: NITROGLYCERIN
     Dosage: 0.2 MG/HR TO PATCH
  5. GLUCOTROL XL [Concomitant]
     Active Substance: GLIPIZIDE
     Dosage: 10 MG, 2X/DAY
     Route: 048
  6. HUMULIN N [Concomitant]
     Active Substance: INSULIN HUMAN
     Dosage: 10 IU, DAILY
  7. NORCO [Concomitant]
     Active Substance: ACETAMINOPHEN\HYDROCODONE BITARTRATE
     Dosage: 5 MG/325 MG  AS NEEDED
     Route: 048
  8. IMDUR [Concomitant]
     Active Substance: ISOSORBIDE MONONITRATE
     Dosage: 80 MG, DAILY
     Route: 048
  9. PRILOSEC [Concomitant]
     Active Substance: OMEPRAZOLE MAGNESIUM
     Dosage: 20 MG, DAILY
     Route: 048
  10. LOFIBRA [Concomitant]
     Active Substance: FENOFIBRATE
     Dosage: 150 MG, DAILY
     Route: 048
  11. LANTUS [Concomitant]
     Active Substance: INSULIN GLARGINE
     Dosage: 10 IU, DAILY
     Route: 058
  12. RANEXA [Concomitant]
     Active Substance: RANOLAZINE
     Dosage: 1000 MG, UNK (ONE TWO TIMES DAILY)
  13. TIKOSYN [Suspect]
     Active Substance: DOFETILIDE
     Indication: ARTERIOSCLEROSIS CORONARY ARTERY
  14. TIKOSYN [Suspect]
     Active Substance: DOFETILIDE
     Indication: MYOCARDIAL ISCHAEMIA
  15. LIPITOR [Concomitant]
     Active Substance: ATORVASTATIN CALCIUM
     Dosage: 80 MG, DAILY
     Route: 048
  16. TIKOSYN [Suspect]
     Active Substance: DOFETILIDE
     Indication: CORONARY ARTERY DISEASE
     Dosage: 250 UG, 2X/DAY
     Route: 048
  17. COREG [Concomitant]
     Active Substance: CARVEDILOL
     Dosage: 12.5 MG, 2X/DAY
     Route: 048
  18. TIKOSYN [Suspect]
     Active Substance: DOFETILIDE
     Indication: ANGINA PECTORIS
  19. LASIX [Concomitant]
     Active Substance: FUROSEMIDE
     Dosage: 80 MG, DAILY (AS NEEDED)
     Route: 048
  20. PRINIVIL [Concomitant]
     Active Substance: LISINOPRIL
     Dosage: 10 MG, DAILY
     Route: 048
  21. NITROSTAT [Concomitant]
     Active Substance: NITROGLYCERIN
     Dosage: 0.4 MG, AS NEEDED

REACTIONS (1)
  - Angina pectoris [Unknown]
